FAERS Safety Report 6343756-3 (Version None)
Quarter: 2009Q3

REPORT INFORMATION
  Report Type: 
  Country: None (occurrence: None)
  Receive Date: 20090908
  Receipt Date: 20090827
  Transmission Date: 20100115
  Serious: Yes (Disabling)
  Sender: FDA-Public Use
  Company Number: B0576458A

PATIENT
  Sex: Male

DRUGS (5)
  1. LAMICTAL [Suspect]
     Indication: PARTIAL SEIZURES
     Dosage: 25MG PER DAY
     Route: 048
     Dates: start: 20090417, end: 20090428
  2. HYDANTOL [Concomitant]
     Indication: PARTIAL SEIZURES
     Dosage: 50MG PER DAY
     Route: 048
     Dates: start: 20040101
  3. GABAPENTIN [Concomitant]
     Indication: DRUG USE FOR UNKNOWN INDICATION
     Dosage: 1400MG PER DAY
     Route: 048
     Dates: start: 20070101
  4. ALEVIATIN [Concomitant]
     Indication: PARTIAL SEIZURES
     Dosage: 200MG PER DAY
     Route: 048
     Dates: start: 20040101
  5. MYSTAN [Concomitant]
     Indication: PARTIAL SEIZURES
     Dosage: 15MG PER DAY
     Route: 048
     Dates: start: 20040101

REACTIONS (2)
  - DRUG ERUPTION [None]
  - PHARYNGITIS [None]
